FAERS Safety Report 10464153 (Version 1)
Quarter: 2014Q3

REPORT INFORMATION
  Report Type: Spontaneous
  Country: US (occurrence: US)
  Receive Date: 20140919
  Receipt Date: 20140919
  Transmission Date: 20150326
  Serious: Yes (Other)
  Sender: FDA-Public Use
  Company Number: US-SA-2013SA105410

PATIENT
  Age: 79 Year
  Sex: Male
  Weight: 108.86 kg

DRUGS (7)
  1. PLAVIX [Concomitant]
     Active Substance: CLOPIDOGREL BISULFATE
     Indication: TRANSIENT ISCHAEMIC ATTACK
     Route: 065
  2. DDAVP [Suspect]
     Active Substance: DESMOPRESSIN ACETATE
     Indication: DIABETES INSIPIDUS
     Dosage: DOSE: 10MICROGRAM/0.1 ML, ONE TO 2 SPRAYS DAILY IN PM?I
     Route: 045
     Dates: end: 201309
  3. DDAVP [Suspect]
     Active Substance: DESMOPRESSIN ACETATE
     Indication: DIABETES INSIPIDUS
     Dosage: DOSE: 10MICROGRAM/0.1 ML, ONE TO 2 SPRAYS DAILY IN PM?I
     Route: 045
     Dates: end: 201309
  4. ZOCOR [Concomitant]
     Active Substance: SIMVASTATIN
     Indication: TRANSIENT ISCHAEMIC ATTACK
     Route: 065
  5. METOPROLOL [Concomitant]
     Active Substance: METOPROLOL
     Indication: ARRHYTHMIA
     Route: 065
  6. FLOMAX [Concomitant]
     Active Substance: TAMSULOSIN HYDROCHLORIDE
     Indication: URINARY RETENTION
     Route: 065
  7. FINASTERIDE. [Concomitant]
     Active Substance: FINASTERIDE
     Indication: HYPERTENSION
     Route: 065

REACTIONS (7)
  - Paraesthesia [Recovered/Resolved]
  - Incorrect dose administered [Unknown]
  - Hyponatraemia [Recovered/Resolved]
  - Overdose [Unknown]
  - Lethargy [Recovered/Resolved]
  - Restlessness [Recovered/Resolved]
  - Confusional state [Recovered/Resolved]
